FAERS Safety Report 10542054 (Version 1)
Quarter: 2014Q4

REPORT INFORMATION
  Report Type: Spontaneous
  Country: PK (occurrence: PK)
  Receive Date: 20141024
  Receipt Date: 20141024
  Transmission Date: 20150529
  Serious: Yes (Other)
  Sender: FDA-Public Use
  Company Number: PHHY2014PK133779

PATIENT
  Age: 29 Year
  Sex: Male

DRUGS (1)
  1. 5-FLUOROURACIL [Suspect]
     Active Substance: FLUOROURACIL
     Indication: OESOPHAGEAL CARCINOMA
     Route: 041

REACTIONS (10)
  - Ventricular tachycardia [Unknown]
  - Blood creatinine increased [Recovered/Resolved]
  - Hemianopia [Recovered/Resolved]
  - Leukoencephalopathy [Recovered/Resolved]
  - Arteriospasm coronary [Unknown]
  - Left ventricular dysfunction [Unknown]
  - Discomfort [Unknown]
  - Acute myocardial infarction [Unknown]
  - Aphasia [Recovered/Resolved]
  - Acute kidney injury [Unknown]
